FAERS Safety Report 15795062 (Version 1)
Quarter: 2019Q1

REPORT INFORMATION
  Report Type: Spontaneous
  Country: US (occurrence: US)
  Receive Date: 20190107
  Receipt Date: 20190107
  Transmission Date: 20190417
  Serious: No
  Sender: FDA-Public Use
  Company Number: None

PATIENT
  Age: 41 Year
  Sex: Female
  Weight: 85.95 kg

DRUGS (4)
  1. AIMOVIG [Suspect]
     Active Substance: ERENUMAB-AOOE
     Indication: MIGRAINE
     Dosage: QUANTITY:1 INJECTION(S);OTHER FREQUENCY:28 DAYS;?
     Route: 058
     Dates: start: 20181213
  2. MULTIVITAMINS [Concomitant]
     Active Substance: VITAMINS
  3. FIORICET [Concomitant]
     Active Substance: ACETAMINOPHEN\BUTALBITAL\CAFFEINE
  4. AMERGE [Concomitant]
     Active Substance: NARATRIPTAN HYDROCHLORIDE

REACTIONS (2)
  - Depression [None]
  - Tremor [None]

NARRATIVE: CASE EVENT DATE: 20181224
